FAERS Safety Report 8208457-5 (Version None)
Quarter: 2012Q1

REPORT INFORMATION
  Report Type: 
  Country: None (occurrence: None)
  Receive Date: 20120314
  Receipt Date: 20120302
  Transmission Date: 20120608
  Serious: Yes (Hospitalization, Other)
  Sender: FDA-Public Use
  Company Number: FR-PFIZER INC-2012064094

PATIENT
  Age: 70 Year
  Sex: Male

DRUGS (13)
  1. CANDESARTAN CILEXETIL AND HYDROCHLOROTHIAZIDE [Interacting]
     Dosage: 16 MG/12.5 MG
     Route: 048
     Dates: end: 20111201
  2. ACETAMINOPHEN [Concomitant]
     Dosage: 600 MG (4 DF, 1X/DAY)
  3. LYRICA [Suspect]
     Dosage: 25 MG (1 DF, 1X/DAY)
     Route: 048
     Dates: end: 20111220
  4. TRIMEPRAZINE TARTRATE [Interacting]
     Indication: INSOMNIA
     Dosage: UNK
     Route: 048
     Dates: end: 20111220
  5. EPINITRIL [Interacting]
     Dosage: UNK
     Route: 062
     Dates: end: 20111201
  6. CRESTOR [Concomitant]
     Dosage: 5 MG
  7. LANTUS [Concomitant]
     Dosage: UNK
  8. ATARAX [Interacting]
     Indication: ANXIETY
     Dosage: 25 MG, 3X/DAY
     Route: 048
     Dates: end: 20111220
  9. FEBUXOSTAT [Concomitant]
     Dosage: 80 MG
  10. ALUMINIUM + MAGNESIUM HYDROXIDE/DIMETICONE [Concomitant]
     Dosage: UNK
  11. PARACETAMOL [Concomitant]
     Dosage: 1 G
  12. ZOLPIDEM [Interacting]
     Indication: INSOMNIA
     Dosage: 2 DF, 1X/DAY
     Route: 048
     Dates: end: 20111226
  13. HUMALOG [Concomitant]
     Dosage: UNK

REACTIONS (10)
  - RENAL FAILURE ACUTE [None]
  - RHABDOMYOLYSIS [None]
  - FALL [None]
  - ABNORMAL BEHAVIOUR [None]
  - ORTHOSTATIC HYPOTENSION [None]
  - PNEUMONIA [None]
  - HYPERKALAEMIA [None]
  - CEREBRAL MICROANGIOPATHY [None]
  - DRUG INTERACTION [None]
  - DISORIENTATION [None]
